FAERS Safety Report 7007143-7 (Version None)
Quarter: 2010Q3

REPORT INFORMATION
  Report Type: 
  Country: None (occurrence: None)
  Receive Date: 20100922
  Receipt Date: 20100916
  Transmission Date: 20110219
  Serious: Yes (Hospitalization)
  Sender: FDA-Public Use
  Company Number: US-BRISTOL-MYERS SQUIBB COMPANY-15288632

PATIENT
  Age: 53 Year
  Sex: Female
  Weight: 95 kg

DRUGS (3)
  1. IXEMPRA KIT [Suspect]
     Indication: ENDOMETRIAL CANCER
     Dosage: CYCLE:21
     Route: 042
     Dates: start: 20100503, end: 20100614
  2. CARBOPLATIN [Suspect]
     Indication: ENDOMETRIAL CANCER
     Dosage: AUC=6,5 IV OVER 30MINS ON DAY 1X6CYCLE,LAST ADMINS ON 14JUN10
     Route: 042
     Dates: start: 20100503, end: 20100614
  3. BEVACIZUMAB [Suspect]
     Indication: ENDOMETRIAL CANCER
     Dosage: 15MG/KG IV OVER 30-90 MINS ON DAY 1X6 CYCLE,LAST ADMINS ON 14JUN10
     Route: 042
     Dates: start: 20100503, end: 20100614

REACTIONS (14)
  - ABDOMINAL ABSCESS [None]
  - CONSTIPATION [None]
  - DECREASED APPETITE [None]
  - GASTROINTESTINAL ANASTOMOTIC LEAK [None]
  - HAEMOGLOBIN DECREASED [None]
  - HYPOALBUMINAEMIA [None]
  - HYPOCALCAEMIA [None]
  - HYPOKALAEMIA [None]
  - HYPOPHOSPHATAEMIA [None]
  - LEUKOPENIA [None]
  - NAUSEA [None]
  - NEUTROPENIA [None]
  - URINARY TRACT INFECTION [None]
  - VOMITING [None]
